FAERS Safety Report 15959372 (Version 1)
Quarter: 2019Q1

REPORT INFORMATION
  Report Type: Report from Study
  Country: US (occurrence: US)
  Receive Date: 20190214
  Receipt Date: 20190214
  Transmission Date: 20190417
  Serious: Yes (Other)
  Sender: FDA-Public Use
  Company Number: US-ROCHE-2261051

PATIENT
  Sex: Female
  Weight: 65.83 kg

DRUGS (1)
  1. OCREVUS [Suspect]
     Active Substance: OCRELIZUMAB
     Indication: RELAPSING-REMITTING MULTIPLE SCLEROSIS
     Dosage: PREVIOUS DATES OF TREATMENT: 25-JAN-2019
     Route: 065
     Dates: start: 20190111

REACTIONS (2)
  - Upper respiratory tract infection [Recovering/Resolving]
  - Back pain [Recovering/Resolving]
